FAERS Safety Report 22627105 (Version 2)
Quarter: 2023Q2

REPORT INFORMATION
  Report Type: Spontaneous
  Country: RO (occurrence: RO)
  Receive Date: 20230622
  Receipt Date: 20230627
  Transmission Date: 20230722
  Serious: Yes (Death, Life-Threatening, Hospitalization, Other)
  Sender: FDA-Public Use
  Company Number: None

PATIENT
  Age: 62 Year
  Sex: Male

DRUGS (14)
  1. PREDNISOLONE [Suspect]
     Active Substance: PREDNISOLONE
     Indication: Organising pneumonia
     Dosage: 40 MILLIGRAM, 40MG/ZI
     Route: 065
  2. DEXAMETHASONE [Suspect]
     Active Substance: DEXAMETHASONE
     Indication: COVID-19 treatment
     Dosage: 8 MILLIGRAM, QD
     Route: 042
  3. DEXAMETHASONE [Suspect]
     Active Substance: DEXAMETHASONE
     Dosage: 16 MILLIGRAM, QD
     Route: 042
  4. DEXAMETHASONE [Suspect]
     Active Substance: DEXAMETHASONE
     Dosage: 8 MILLIGRAM, QD
     Route: 042
  5. OXYGEN [Suspect]
     Active Substance: OXYGEN
     Indication: COVID-19 treatment
     Dosage: 4 LITER PER MINUTE ON FACE MASK
     Route: 065
  6. OXYGEN [Suspect]
     Active Substance: OXYGEN
     Dosage: 20 LITER PER MINUTE
     Route: 065
  7. OXYGEN [Suspect]
     Active Substance: OXYGEN
     Dosage: 10 LITER PER MINUTE
     Route: 065
  8. OXYGEN [Suspect]
     Active Substance: OXYGEN
     Dosage: 35 LITER PER MINUTE
  9. METHYLPREDNISOLONE [Suspect]
     Active Substance: METHYLPREDNISOLONE
     Indication: Organising pneumonia
     Dosage: 500 MILLIGRAM, PULSE THERAPY
     Route: 065
  10. TAMSULOSIN [Concomitant]
     Active Substance: TAMSULOSIN
     Indication: Benign prostatic hyperplasia
     Dosage: UNK
     Route: 065
  11. ROSUVASTATIN [Concomitant]
     Active Substance: ROSUVASTATIN
     Indication: Dyslipidaemia
     Dosage: UNK
     Route: 065
  12. DALTEPARIN [Concomitant]
     Active Substance: DALTEPARIN
     Indication: Anticoagulant therapy
     Dosage: 5000 UNITS, QD, THE PATIENT RECEIVED SC DALTEPARIN 5000UNITS ONCE DAILY
     Route: 058
  13. DALTEPARIN [Concomitant]
     Active Substance: DALTEPARIN
     Indication: Thrombosis prophylaxis
     Dosage: 7500 INTERNATIONAL UNIT, BID
     Route: 058
  14. REMDESIVIR [Concomitant]
     Active Substance: REMDESIVIR
     Indication: COVID-19
     Dosage: UNK
     Route: 065

REACTIONS (9)
  - Haemodynamic instability [Fatal]
  - Pulmonary bullae rupture [Fatal]
  - Respiratory failure [Fatal]
  - Pneumothorax [Fatal]
  - Pneumonia bacterial [Unknown]
  - Hyperglycaemia [Unknown]
  - Clostridium difficile infection [Recovered/Resolved]
  - Clostridium difficile colitis [Recovered/Resolved]
  - Off label use [Unknown]
